FAERS Safety Report 7076634-5 (Version None)
Quarter: 2010Q4

REPORT INFORMATION
  Report Type: 
  Country: None (occurrence: None)
  Receive Date: 20101101
  Receipt Date: 20101027
  Transmission Date: 20110411
  Serious: Yes (Life-Threatening, Hospitalization)
  Sender: FDA-Public Use
  Company Number: CA-ASTRAZENECA-2010SE51102

PATIENT
  Age: 86 Year
  Sex: Female

DRUGS (3)
  1. CRESTOR [Suspect]
     Indication: BLOOD CHOLESTEROL INCREASED
     Route: 048
     Dates: start: 20070101, end: 20100501
  2. CRESTOR [Suspect]
     Route: 048
     Dates: start: 20101002, end: 20101011
  3. ACTONEL [Concomitant]

REACTIONS (4)
  - CARDIAC ARREST [None]
  - CARDIAC PACEMAKER INSERTION [None]
  - MYALGIA [None]
  - RASH MACULO-PAPULAR [None]
